FAERS Safety Report 7458149-5 (Version None)
Quarter: 2011Q2

REPORT INFORMATION
  Report Type: 
  Country: None (occurrence: None)
  Receive Date: 20110504
  Receipt Date: 20110503
  Transmission Date: 20111010
  Serious: Yes (Hospitalization)
  Sender: FDA-Public Use
  Company Number: US-ROXANE LABORATORIES, INC.-2011-RO-00394RO

PATIENT
  Sex: Male

DRUGS (1)
  1. PROPRANOLOL [Suspect]
     Indication: TACHYARRHYTHMIA
     Dosage: 12 MG
     Route: 048
     Dates: end: 20110312

REACTIONS (6)
  - HYPERHIDROSIS [None]
  - BLOOD GLUCOSE DECREASED [None]
  - RESPIRATORY SYNCYTIAL VIRUS INFECTION [None]
  - DECREASED ACTIVITY [None]
  - UNRESPONSIVE TO STIMULI [None]
  - BODY TEMPERATURE DECREASED [None]
